FAERS Safety Report 8524401-5 (Version None)
Quarter: 2012Q3

REPORT INFORMATION
  Report Type: 
  Country: None (occurrence: None)
  Receive Date: 20120720
  Receipt Date: 20120714
  Transmission Date: 20120928
  Serious: Yes (Hospitalization, Other)
  Sender: FDA-Public Use
  Company Number: ES-PFIZER INC-2012116300

PATIENT
  Age: 33 Year
  Sex: Male
  Weight: 80 kg

DRUGS (6)
  1. METHADONE [Concomitant]
     Dosage: 50 MG, UNK
  2. LEVOTHYROXINE SODIUM [Concomitant]
     Dosage: 200 UG, UNK
  3. ALPRAZOLAM [Suspect]
     Dosage: 1 MG, 3X/DAY
     Dates: start: 20120201, end: 20120601
  4. CLONAZEPAM [Concomitant]
     Dosage: 0.5 MG, UNK
  5. PALIPERIDONE [Concomitant]
     Dosage: 75 MG, UNK
  6. ALPRAZOLAM [Suspect]
     Dosage: 0.5 MG, UNK
     Dates: start: 20120101

REACTIONS (6)
  - DRUG INEFFECTIVE [None]
  - INCORRECT ROUTE OF DRUG ADMINISTRATION [None]
  - CONSTIPATION [None]
  - DEPRESSION [None]
  - SUICIDE ATTEMPT [None]
  - DRUG ABUSE [None]
